FAERS Safety Report 5628282-9 (Version None)
Quarter: 2008Q1

REPORT INFORMATION
  Report Type: 
  Country: None (occurrence: None)
  Receive Date: 20080215
  Receipt Date: 20080207
  Transmission Date: 20080703
  Serious: Yes (Hospitalization)
  Sender: FDA-Public Use
  Company Number: BE-PFIZER INC-2007069117

PATIENT
  Sex: Female
  Weight: 66 kg

DRUGS (9)
  1. SU-011,248 [Suspect]
     Indication: BREAST CANCER
     Route: 048
     Dates: start: 20070808, end: 20070828
  2. CAPECITABINE [Suspect]
     Indication: BREAST CANCER
     Route: 048
  3. NORMACOL [Concomitant]
     Route: 048
     Dates: start: 20051220, end: 20070818
  4. PROZAC [Concomitant]
     Route: 048
  5. DAFALGAN [Concomitant]
     Route: 048
     Dates: start: 20060113, end: 20070814
  6. BROMAZEPAM [Concomitant]
     Route: 048
  7. LORAMET [Concomitant]
     Route: 048
  8. CONTRAMAL [Concomitant]
     Route: 048
  9. LACRYSTAT [Concomitant]
     Route: 061

REACTIONS (9)
  - ANOREXIA [None]
  - DYSPHAGIA [None]
  - FATIGUE [None]
  - KLEBSIELLA INFECTION [None]
  - MALAISE [None]
  - NAUSEA [None]
  - OESOPHAGITIS [None]
  - STOMATITIS [None]
  - URINARY TRACT INFECTION [None]
